FAERS Safety Report 11792682 (Version 1)
Quarter: 2015Q4

REPORT INFORMATION
  Report Type: Spontaneous
  Country: DE (occurrence: None)
  Receive Date: 20151130
  Receipt Date: 20151130
  Transmission Date: 20160305
  Serious: Yes (Death)
  Sender: FDA-Public Use
  Company Number: 2015RR-106393

PATIENT
  Age: 46 Year
  Sex: Male
  Weight: 104 kg

DRUGS (5)
  1. CLOPIDOGREL (CLOPIDOGREL), UNKNOWN [Suspect]
     Active Substance: CLOPIDOGREL BISULFATE
     Indication: PRODUCT USED FOR UNKNOWN INDICATION
     Route: 048
     Dates: start: 201507
  2. ASS (ACETYLSALICYLIC ACID) [Concomitant]
     Active Substance: ASPIRIN
  3. METOPROLOL (METOPROLOL SUCCINATE) [Concomitant]
  4. OMEPRAZOL (OMEPRAZOLE) [Concomitant]
  5. ATORVASTATIN [Concomitant]
     Active Substance: ATORVASTATIN

REACTIONS (5)
  - Thrombotic thrombocytopenic purpura [None]
  - Gastrointestinal haemorrhage [None]
  - Metabolic acidosis [None]
  - Acute kidney injury [None]
  - Cardiac arrest [None]

NARRATIVE: CASE EVENT DATE: 20150903
